FAERS Safety Report 4625716-3 (Version None)
Quarter: 2005Q1

REPORT INFORMATION
  Report Type: 
  Country: None (occurrence: None)
  Receive Date: 20050330
  Receipt Date: 20050316
  Transmission Date: 20050727
  Serious: Yes (Hospitalization)
  Sender: FDA-Public Use
  Company Number: CA-2004-032827

PATIENT
  Age: 34 Year
  Sex: Female

DRUGS (3)
  1. BETASERON [Suspect]
     Indication: RELAPSING-REMITTING MULTIPLE SCLEROSIS
     Dosage: 8 MIU, EVERY 2ND, SUBCUTANEOUS
     Route: 058
     Dates: start: 20010309
  2. LITHIUM CARBONATE [Concomitant]
  3. SEROQUEL [Concomitant]

REACTIONS (1)
  - MANIA [None]
